FAERS Safety Report 9885158 (Version 1)
Quarter: 2014Q1

REPORT INFORMATION
  Report Type: Spontaneous
  Country: US (occurrence: US)
  Receive Date: 20140210
  Receipt Date: 20140210
  Transmission Date: 20141002
  Serious: No
  Sender: FDA-Public Use
  Company Number: US-PFIZER INC-2014036978

PATIENT
  Age: 65 Year
  Sex: Female
  Weight: 57 kg

DRUGS (3)
  1. TESSALON [Suspect]
     Indication: COUGH
     Dosage: 200 MG, 3X/DAY
     Dates: start: 20130813
  2. VERAPAMIL HCL [Suspect]
     Indication: MIGRAINE
     Dosage: UNK
  3. DEXAMETHASONE/TOBRAMYCIN SULFATE [Suspect]
     Indication: EYE DISORDER
     Dosage: 1 GTT, 3X/DAY
     Dates: start: 201308

REACTIONS (2)
  - Petechiae [Unknown]
  - Off label use [Unknown]
